FAERS Safety Report 10760516 (Version 2)
Quarter: 2015Q2

REPORT INFORMATION
  Report Type: Spontaneous
  Country: JP (occurrence: JP)
  Receive Date: 20150204
  Receipt Date: 20150402
  Transmission Date: 20150821
  Serious: Yes (Other)
  Sender: FDA-Public Use
  Company Number: JP-ROCHE-1530440

PATIENT
  Age: 67 Year
  Sex: Male
  Weight: 73 kg

DRUGS (9)
  1. 5-FU [Concomitant]
     Active Substance: FLUOROURACIL
     Indication: SMALL INTESTINE CARCINOMA METASTATIC
     Dosage: DOSAGE UNCERTAIN.
     Route: 040
     Dates: start: 20141031, end: 20141120
  2. 5-FU [Concomitant]
     Active Substance: FLUOROURACIL
     Indication: COLON CANCER
     Dosage: DOSAGE IS UNCERTAIN.
     Route: 041
     Dates: start: 20141031, end: 20141120
  3. LEVOFOLINATE [Concomitant]
     Active Substance: LEVOLEUCOVORIN CALCIUM
     Indication: SMALL INTESTINE CARCINOMA METASTATIC
     Dosage: DOSAGE UNCERTAIN.
     Route: 041
     Dates: start: 20141031, end: 20141120
  4. LEVOFOLINATE [Concomitant]
     Active Substance: LEVOLEUCOVORIN CALCIUM
     Indication: SMALL INTESTINE CARCINOMA METASTATIC
     Dosage: DOSAGE IS UNCERTAIN.
     Route: 041
     Dates: start: 20141219
  5. ELPLAT [Suspect]
     Active Substance: OXALIPLATIN
     Indication: SMALL INTESTINE CARCINOMA METASTATIC
     Dosage: DOSAGE UNCERTAIN.
     Route: 041
     Dates: start: 20141031, end: 20141120
  6. AVASTIN [Suspect]
     Active Substance: BEVACIZUMAB
     Indication: SMALL INTESTINE CARCINOMA METASTATIC
     Dosage: 350 MG
     Route: 041
     Dates: start: 20150107
  7. ELPLAT [Suspect]
     Active Substance: OXALIPLATIN
     Indication: SMALL INTESTINE CARCINOMA METASTATIC
     Dosage: DOSAGE IS UNCERTAIN.
     Route: 041
     Dates: start: 20141219
  8. 5-FU [Concomitant]
     Active Substance: FLUOROURACIL
     Indication: SMALL INTESTINE CARCINOMA METASTATIC
     Dosage: DOSAGE IS UNCERTAIN.
     Route: 040
     Dates: start: 20141219
  9. 5-FU [Concomitant]
     Active Substance: FLUOROURACIL
     Indication: SMALL INTESTINE CARCINOMA METASTATIC
     Dosage: DOSAGE IS UNCERTAIN.
     Route: 041
     Dates: start: 20141219

REACTIONS (3)
  - Swelling [Unknown]
  - Extravasation [Not Recovered/Not Resolved]
  - Injection site pain [Unknown]

NARRATIVE: CASE EVENT DATE: 20150107
